FAERS Safety Report 19807954 (Version 5)
Quarter: 2021Q4

REPORT INFORMATION
  Report Type: Spontaneous
  Country: US (occurrence: US)
  Receive Date: 20210908
  Receipt Date: 20211216
  Transmission Date: 20220303
  Serious: No
  Sender: FDA-Public Use
  Company Number: US-SA-SAC20210907000114

PATIENT
  Age: 28 Year
  Sex: Male

DRUGS (4)
  1. FABRAZYME [Suspect]
     Active Substance: AGALSIDASE BETA
     Indication: Fabry^s disease
     Dosage: 70 MG, QOW
     Route: 042
     Dates: start: 202104
  2. FABRAZYME [Suspect]
     Active Substance: AGALSIDASE BETA
     Dosage: 85 MG, QOW
     Route: 042
     Dates: start: 20210407, end: 20210917
  3. FABRAZYME [Suspect]
     Active Substance: AGALSIDASE BETA
     Dosage: 85 MG, QOW
     Route: 042
     Dates: start: 2021, end: 20211001
  4. FABRAZYME [Suspect]
     Active Substance: AGALSIDASE BETA
     Dosage: 15 MG, QOW
     Route: 042

REACTIONS (4)
  - Tooth abscess [Unknown]
  - SARS-CoV-2 test positive [Unknown]
  - COVID-19 [Unknown]
  - Product dose omission issue [Unknown]

NARRATIVE: CASE EVENT DATE: 20210820
